FAERS Safety Report 5879928-1 (Version None)
Quarter: 2008Q3

REPORT INFORMATION
  Report Type: 
  Country: None (occurrence: None)
  Receive Date: 20080911
  Receipt Date: 20080911
  Transmission Date: 20090109
  Serious: Yes (Other)
  Sender: FDA-Public Use
  Company Number: None

PATIENT
  Sex: Female
  Weight: 122.4712 kg

DRUGS (1)
  1. ACTOS [Suspect]
     Indication: TYPE 2 DIABETES MELLITUS
     Dosage: 15 MG. 1XDAILY ORAL ABOUT 1 1/2 - 2 YRS - CHANGED TO ACTOS WHEN WARNINGS ABOUT AVANDIA CAME OUT.
     Route: 048

REACTIONS (3)
  - ARTHRALGIA [None]
  - FOOT FRACTURE [None]
  - STRESS FRACTURE [None]
